FAERS Safety Report 25914104 (Version 2)
Quarter: 2025Q4

REPORT INFORMATION
  Report Type: Report from Study
  Country: US (occurrence: US)
  Receive Date: 20251013
  Receipt Date: 20251014
  Transmission Date: 20260118
  Serious: Yes (Other)
  Sender: PFIZER
  Company Number: US-PFIZER INC-PV202300163196

PATIENT
  Age: 71 Year
  Sex: Female

DRUGS (5)
  1. BRAFTOVI [Suspect]
     Active Substance: ENCORAFENIB
     Indication: Colon cancer
     Dosage: 75 MG, 1X/DAY ((1 CAPSULE) BY MOUTH ONCE DAILY FOR TWO WEEKS)
     Route: 048
     Dates: start: 20230916
  2. BRAFTOVI [Suspect]
     Active Substance: ENCORAFENIB
     Dosage: 150 MG, 1X/DAY
     Route: 048
     Dates: start: 20230930, end: 202406
  3. BRAFTOVI [Suspect]
     Active Substance: ENCORAFENIB
     Dosage: 75 MG, 1X/DAY
     Route: 048
     Dates: start: 20250217
  4. BRAFTOVI [Suspect]
     Active Substance: ENCORAFENIB
     Dosage: 150 MG, 1X/DAY
     Route: 048
  5. ERBITUX [Concomitant]
     Active Substance: CETUXIMAB
     Dosage: EVERY 2 WEEKS (INFUSION)

REACTIONS (22)
  - Second primary malignancy [Unknown]
  - Basal cell carcinoma [Unknown]
  - Carcinoembryonic antigen increased [Unknown]
  - Heart rate increased [Recovered/Resolved]
  - Palpitations [Recovered/Resolved]
  - Visual impairment [Recovered/Resolved]
  - Night sweats [Recovering/Resolving]
  - Cardiovascular disorder [Not Recovered/Not Resolved]
  - Insomnia [Not Recovered/Not Resolved]
  - Cough [Not Recovered/Not Resolved]
  - Melanocytic naevus [Unknown]
  - Acrochordon [Unknown]
  - Skin disorder [Unknown]
  - Skin disorder [Recovering/Resolving]
  - Pruritus [Recovering/Resolving]
  - Fatigue [Recovering/Resolving]
  - Dry skin [Unknown]
  - Palmar-plantar erythrodysaesthesia syndrome [Unknown]
  - Hair texture abnormal [Unknown]
  - Blood pressure diastolic decreased [Unknown]
  - Hypersensitivity [Unknown]
  - Off label use [Unknown]

NARRATIVE: CASE EVENT DATE: 20230901
